FAERS Safety Report 24203317 (Version 1)
Quarter: 2024Q3

REPORT INFORMATION
  Report Type: Report from Study
  Country: FR (occurrence: FR)
  Receive Date: 20240813
  Receipt Date: 20240813
  Transmission Date: 20241016
  Serious: Yes (Death, Hospitalization)
  Sender: AKCEA THERAPEUTICS
  Company Number: FR-AKCEA THERAPEUTICS, INC.-2024IS006220

PATIENT

DRUGS (1)
  1. TEGSEDI [Suspect]
     Active Substance: INOTERSEN SODIUM
     Indication: Hereditary neuropathic amyloidosis
     Dosage: 284 MILLIGRAM, QW
     Route: 058
     Dates: start: 20200123

REACTIONS (4)
  - Death [Fatal]
  - General physical health deterioration [Unknown]
  - Diabetes mellitus [Unknown]
  - Decubitus ulcer [Unknown]
